FAERS Safety Report 8971351 (Version 2)
Quarter: 2013Q1

REPORT INFORMATION
  Report Type: Spontaneous
  Country: BR (occurrence: BR)
  Receive Date: 20121217
  Receipt Date: 20130227
  Transmission Date: 20140127
  Serious: No
  Sender: FDA-Public Use
  Company Number: PHHY2012BR115544

PATIENT
  Sex: Female

DRUGS (4)
  1. TRILEPTAL [Suspect]
     Indication: EPILEPSY
     Dosage: UNK UKN, UNK
  2. TRILEPTAL [Suspect]
     Indication: EPILEPSY
     Dosage: 1.5 DF, BID (1 TABLET AND HALF AT MORNING AND AT NIGHT)
     Route: 048
  3. TEGRETOL CR [Suspect]
     Indication: EPILEPSY
     Dosage: 1.5 DF, BID (1 AND HALF TABLET AT MORNING AND AT NIGHT)
     Route: 048
  4. FRISIUM [Concomitant]
     Dosage: 2 DF, DAILY
     Route: 048

REACTIONS (2)
  - Wrong technique in drug usage process [Unknown]
  - Convulsion [Recovered/Resolved]
